FAERS Safety Report 21167442 (Version 1)
Quarter: 2022Q3

REPORT INFORMATION
  Report Type: Spontaneous
  Country: US (occurrence: US)
  Receive Date: 20220803
  Receipt Date: 20220803
  Transmission Date: 20221026
  Serious: No
  Sender: FDA-Public Use
  Company Number: US-ELITE LABORATORIES INC.-2022ELT00027

PATIENT
  Sex: Male

DRUGS (1)
  1. TRIMIPRAMINE MALEATE [Suspect]
     Active Substance: TRIMIPRAMINE MALEATE
     Indication: Depression

REACTIONS (2)
  - Malaise [Unknown]
  - Product quality issue [Unknown]
